FAERS Safety Report 4466660-4 (Version None)
Quarter: 2004Q4

REPORT INFORMATION
  Report Type: 
  Country: None (occurrence: None)
  Receive Date: 20041006
  Receipt Date: 20040928
  Transmission Date: 20050328
  Serious: Yes (Other)
  Sender: FDA-Public Use
  Company Number: GR-ROCHE-381695

PATIENT
  Age: 60 Year
  Sex: Female

DRUGS (2)
  1. XENICAL [Suspect]
     Indication: OBESITY
     Route: 048
     Dates: start: 20040920, end: 20040927
  2. MESULID [Concomitant]

REACTIONS (2)
  - BREAST OEDEMA [None]
  - BREAST PAIN [None]
